FAERS Safety Report 9970193 (Version 1)
Quarter: 2014Q1

REPORT INFORMATION
  Report Type: Spontaneous
  Country: RS (occurrence: None)
  Receive Date: 20140304
  Receipt Date: 20140304
  Transmission Date: 20141002
  Serious: Yes (Other)
  Sender: FDA-Public Use
  Company Number: 7271410

PATIENT
  Age: 32 Year
  Sex: Female

DRUGS (1)
  1. LEVOTHYROXINE (LEVOTHYROXINE) (LEVOTHYROXINE SODIUM) [Suspect]
     Indication: HYPOTHYROIDISM

REACTIONS (2)
  - Abortion spontaneous [None]
  - Maternal exposure during pregnancy [None]
